FAERS Safety Report 19405452 (Version 1)
Quarter: 2021Q2

REPORT INFORMATION
  Report Type: Spontaneous
  Country: CH (occurrence: CH)
  Receive Date: 20210611
  Receipt Date: 20210611
  Transmission Date: 20210717
  Serious: Yes (Other)
  Sender: FDA-Public Use
  Company Number: CH-ROCHE-2845746

PATIENT
  Age: 79 Year
  Sex: Male

DRUGS (24)
  1. NOVORAPID [Concomitant]
     Active Substance: INSULIN ASPART
     Dates: start: 20210326
  2. TRAJENTA [Concomitant]
     Active Substance: LINAGLIPTIN
     Dates: end: 20210421
  3. APROVEL [Concomitant]
     Active Substance: IRBESARTAN
     Dates: start: 20210326, end: 20210421
  4. LANTUS [Concomitant]
     Active Substance: INSULIN GLARGINE
  5. CALCIMAGON D3 [Concomitant]
     Active Substance: CALCIUM\CHOLECALCIFEROL
     Dates: start: 20210330
  6. PRADIF [Concomitant]
     Active Substance: TAMSULOSIN HYDROCHLORIDE
     Dates: end: 20210421
  7. ESBRIET [Suspect]
     Active Substance: PIRFENIDONE
     Indication: PRODUCT USED FOR UNKNOWN INDICATION
     Route: 048
     Dates: start: 20210331, end: 20210420
  8. LAXOBERON [Concomitant]
     Active Substance: SODIUM PICOSULFATE
     Dates: start: 20210328
  9. PURSANA [Concomitant]
     Active Substance: FIG FRUIT OIL\SORBITOL
  10. TEMGESIC [Concomitant]
     Active Substance: BUPRENORPHINE HYDROCHLORIDE
     Dates: start: 20210329, end: 20210421
  11. ESIDREX [Concomitant]
     Active Substance: HYDROCHLOROTHIAZIDE
     Dates: start: 20210326, end: 20210421
  12. ASPIRIN CARDIO [Concomitant]
     Active Substance: ASPIRIN
     Dates: start: 20210326
  13. BELOC ZOK [Concomitant]
     Active Substance: METOPROLOL SUCCINATE
  14. MYSOLINE [Concomitant]
     Active Substance: PRIMIDONE
  15. TEMESTA [Concomitant]
  16. ZOLPIDEM [Concomitant]
     Active Substance: ZOLPIDEM TARTRATE
     Dates: start: 20210331, end: 20210403
  17. DEXAMETHASONE. [Concomitant]
     Active Substance: DEXAMETHASONE
  18. SINTROM [Concomitant]
     Active Substance: ACENOCOUMAROL
  19. AMLODIPINE [Concomitant]
     Active Substance: AMLODIPINE BESYLATE
  20. NEXIUM [Concomitant]
     Active Substance: ESOMEPRAZOLE MAGNESIUM
  21. CLEXANE [Concomitant]
     Active Substance: ENOXAPARIN SODIUM
     Dates: start: 20210326, end: 20210330
  22. CRESTOR [Concomitant]
     Active Substance: ROSUVASTATIN CALCIUM
     Dates: end: 20210420
  23. TORASEMIDE [Concomitant]
     Active Substance: TORSEMIDE
     Dates: start: 20210328, end: 20210330
  24. DAFALGAN [Concomitant]
     Active Substance: ACETAMINOPHEN
     Dates: start: 20210302, end: 20210421

REACTIONS (1)
  - Cholestasis [Recovering/Resolving]

NARRATIVE: CASE EVENT DATE: 20210430
